FAERS Safety Report 4611869-X (Version None)
Quarter: 2005Q1

REPORT INFORMATION
  Report Type: 
  Country: None (occurrence: None)
  Receive Date: 20050308
  Receipt Date: 20050117
  Transmission Date: 20050727
  Serious: Yes (Other)
  Sender: FDA-Public Use
  Company Number: 2005UW00853

PATIENT

DRUGS (2)
  1. CRESTOR [Suspect]
     Dosage: 10 MG DAILY PO
     Route: 048
  2. CRESTOR [Suspect]
     Dosage: 20 MG DAILY PO
     Route: 048

REACTIONS (1)
  - LIPOPROTEIN (A) INCREASED [None]
